FAERS Safety Report 5648305-0 (Version None)
Quarter: 2008Q1

REPORT INFORMATION
  Report Type: 
  Country: None (occurrence: None)
  Receive Date: 20080304
  Receipt Date: 20080225
  Transmission Date: 20080703
  Serious: Yes (Hospitalization, Other)
  Sender: FDA-Public Use
  Company Number: GB-JNJFOC-20080206242

PATIENT
  Sex: Female
  Weight: 62 kg

DRUGS (10)
  1. REMICADE [Suspect]
     Indication: RHEUMATOID ARTHRITIS
     Route: 042
  2. SULFASALAZINE [Concomitant]
  3. METHOTREXATE [Concomitant]
  4. ASPIRIN [Concomitant]
  5. DICLOFENAC SODIUM [Concomitant]
  6. FERROUS SULFATE TAB [Concomitant]
  7. FOLIC ACID [Concomitant]
  8. MISOPROSTOL [Concomitant]
  9. LEVOTHYROXINE SODIUM [Concomitant]
  10. VITAMIN B-12 [Concomitant]

REACTIONS (1)
  - BREAST CANCER [None]
